APPROVED DRUG PRODUCT: OCUPRESS
Active Ingredient: CARTEOLOL HYDROCHLORIDE
Strength: 1% **Federal Register determination that product was not discontinued or withdrawn for safety or effectiveness reasons**
Dosage Form/Route: SOLUTION/DROPS;OPHTHALMIC
Application: N019972 | Product #001
Applicant: NOVARTIS PHARMACEUTICALS CORP
Approved: May 23, 1990 | RLD: Yes | RS: No | Type: DISCN